FAERS Safety Report 19039414 (Version 1)
Quarter: 2021Q1

REPORT INFORMATION
  Report Type: Spontaneous
  Country: GB (occurrence: GB)
  Receive Date: 20210322
  Receipt Date: 20210322
  Transmission Date: 20210420
  Serious: Yes (Other)
  Sender: FDA-Public Use
  Company Number: GB-TEVA-2021-GB-1890233

PATIENT
  Age: 46 Year
  Sex: Male

DRUGS (9)
  1. DARUNAVIR [Concomitant]
     Active Substance: DARUNAVIR
     Indication: ILL-DEFINED DISORDER
  2. PREGABALIN MYLAN [Concomitant]
     Active Substance: PREGABALIN
     Indication: ILL-DEFINED DISORDER
  3. SALBUTAMOL BASE [Concomitant]
     Indication: ILL-DEFINED DISORDER
  4. MIRTAZAPIN [Concomitant]
     Active Substance: MIRTAZAPINE
     Indication: ILL-DEFINED DISORDER
  5. OLANZAPIN [Concomitant]
     Active Substance: OLANZAPINE
     Indication: ILL-DEFINED DISORDER
  6. FLUTICASONE FUROATE [Suspect]
     Active Substance: FLUTICASONE FUROATE
     Indication: CHRONIC OBSTRUCTIVE PULMONARY DISEASE
     Dosage: 184 MICROGRAMS
     Route: 055
     Dates: start: 20190101, end: 20201215
  7. LAMIVUDIN [Concomitant]
     Active Substance: LAMIVUDINE
     Indication: ILL-DEFINED DISORDER
  8. RITONAVIR. [Concomitant]
     Active Substance: RITONAVIR
     Indication: ILL-DEFINED DISORDER
  9. TIOTROPIUM [Concomitant]
     Active Substance: TIOTROPIUM
     Indication: ILL-DEFINED DISORDER

REACTIONS (1)
  - Adrenal insufficiency [Recovering/Resolving]

NARRATIVE: CASE EVENT DATE: 20201215
